FAERS Safety Report 7811956-9 (Version None)
Quarter: 2011Q4

REPORT INFORMATION
  Report Type: 
  Country: None (occurrence: None)
  Receive Date: 20111013
  Receipt Date: 20111003
  Transmission Date: 20120403
  Serious: Yes (Other)
  Sender: FDA-Public Use
  Company Number: PHEH2011US05823

PATIENT
  Sex: Female
  Weight: 91.61 kg

DRUGS (5)
  1. BYSTOLIC [Concomitant]
  2. EDARBI [Concomitant]
  3. SIMVASTATIN [Concomitant]
  4. ASPIRIN [Concomitant]
  5. TEKTURNA [Suspect]
     Indication: HYPERTENSION
     Dosage: 300 MG, QD
     Dates: start: 20101003

REACTIONS (3)
  - LIP SWELLING [None]
  - SKIN EXFOLIATION [None]
  - BURNING SENSATION [None]
